FAERS Safety Report 18315638 (Version 1)
Quarter: 2020Q3

REPORT INFORMATION
  Report Type: Spontaneous
  Country: FR (occurrence: FR)
  Receive Date: 20200926
  Receipt Date: 20200926
  Transmission Date: 20201103
  Serious: Yes (Hospitalization)
  Sender: FDA-Public Use
  Company Number: PHHY2019FR122585

PATIENT
  Age: 34 Year
  Sex: Female
  Weight: 50 kg

DRUGS (6)
  1. LIDOCAINE. [Suspect]
     Active Substance: LIDOCAINE
     Indication: ANAESTHESIA
     Dosage: 20 MG
     Route: 042
     Dates: start: 20190212, end: 20190212
  2. PROPOFOL LIPURO [Suspect]
     Active Substance: PROPOFOL
     Indication: ANAESTHESIA
     Dosage: 200 MG
     Route: 042
     Dates: start: 20190212, end: 20190212
  3. CELOCURINE [Suspect]
     Active Substance: SUCCINYLCHOLINE
     Indication: GENERAL ANAESTHESIA
     Dosage: 50 MG
     Route: 042
     Dates: start: 20190214, end: 20190214
  4. SUFENTANIL [Suspect]
     Active Substance: SUFENTANIL
     Indication: ANAESTHESIA
     Dosage: 10 UG
     Route: 042
     Dates: start: 20190212, end: 20190212
  5. ATRACURIUM HOSPIRA [Suspect]
     Active Substance: ATRACURIUM BESYLATE
     Indication: GENERAL ANAESTHESIA
     Dosage: 25 MG
     Route: 042
     Dates: start: 20190214, end: 20190214
  6. AMOXICILLINE ACIDE CLAVULANIQUE SANDOZ [Suspect]
     Active Substance: AMOXICILLIN\CLAVULANATE POTASSIUM
     Indication: GENERAL ANAESTHESIA
     Dosage: 2 G, UNK
     Route: 042
     Dates: start: 20190214, end: 20190214

REACTIONS (1)
  - Anaphylactic shock [Recovered/Resolved]

NARRATIVE: CASE EVENT DATE: 20190214
